FAERS Safety Report 7557020-8 (Version None)
Quarter: 2011Q2

REPORT INFORMATION
  Report Type: 
  Country: None (occurrence: None)
  Receive Date: 20110620
  Receipt Date: 20110607
  Transmission Date: 20111010
  Serious: Yes (Other)
  Sender: FDA-Public Use
  Company Number: US-ROCHE-709494

PATIENT
  Sex: Female
  Weight: 38.6 kg

DRUGS (11)
  1. KENALOG [Concomitant]
     Indication: ACNE
     Dosage: STRENGTH: 2.5MG/CC
     Route: 026
  2. CLINDAGEL [Concomitant]
     Dosage: FREQUENCY EVERY DAY, GEL
  3. DESOWEN [Concomitant]
     Dates: start: 20030123
  4. PRILOCAINE HYDROCHLORIDE [Concomitant]
     Dosage: BENZOCAINE/PRILOCAINE AS BETACAINE PLUS
     Dates: start: 20030213
  5. BENZOCAINE [Concomitant]
     Dosage: BENZOCAINE/PRILOCAINE AS BETACAINE PLUS
     Dates: start: 20030213
  6. ACCUTANE [Suspect]
     Indication: ACNE
     Route: 048
     Dates: start: 20030116
  7. ACCUTANE [Suspect]
     Route: 048
     Dates: start: 20030516
  8. ACCUTANE [Suspect]
     Route: 048
     Dates: start: 20030728, end: 20030901
  9. VITAMIN E [Concomitant]
  10. BREVOXYL [Concomitant]
  11. SEASONALE [Concomitant]
     Dosage: STRENGTH: 0.15/0.03 MG

REACTIONS (12)
  - DRY SKIN [None]
  - CHAPPED LIPS [None]
  - PERIRECTAL ABSCESS [None]
  - STRESS [None]
  - ACNE [None]
  - NAUSEA [None]
  - HAEMOGLOBIN DECREASED [None]
  - CROHN'S DISEASE [None]
  - ANAL FISTULA [None]
  - IRON DEFICIENCY ANAEMIA [None]
  - INFLAMMATORY BOWEL DISEASE [None]
  - BLOOD TRIGLYCERIDES INCREASED [None]
